FAERS Safety Report 24235008 (Version 1)
Quarter: 2024Q3

REPORT INFORMATION
  Report Type: Spontaneous
  Country: US (occurrence: US)
  Receive Date: 20240821
  Receipt Date: 20240821
  Transmission Date: 20241017
  Serious: Yes (Other)
  Sender: BRISTOL MYERS SQUIBB
  Company Number: US-BRISTOL-MYERS SQUIBB COMPANY-2024-128835

PATIENT
  Age: 6 Decade
  Sex: Male

DRUGS (7)
  1. NIVOLUMAB [Suspect]
     Active Substance: NIVOLUMAB
     Indication: Malignant melanoma
     Dates: start: 201910
  2. NIVOLUMAB [Suspect]
     Active Substance: NIVOLUMAB
     Indication: Squamous cell carcinoma of skin
  3. IPILIMUMAB [Suspect]
     Active Substance: IPILIMUMAB
     Indication: Malignant melanoma
     Dates: start: 201910
  4. IPILIMUMAB [Suspect]
     Active Substance: IPILIMUMAB
     Indication: Squamous cell carcinoma of skin
  5. PREDNISONE [Concomitant]
     Active Substance: PREDNISONE
     Indication: Renal transplant
  6. SIROLIMUS [Concomitant]
     Active Substance: SIROLIMUS
     Indication: Renal transplant
  7. SIROLIMUS [Concomitant]
     Active Substance: SIROLIMUS

REACTIONS (1)
  - Kidney transplant rejection [Recovering/Resolving]
